FAERS Safety Report 25575591 (Version 3)
Quarter: 2025Q4

REPORT INFORMATION
  Report Type: Spontaneous
  Country: JP (occurrence: JP)
  Receive Date: 20250718
  Receipt Date: 20251208
  Transmission Date: 20260118
  Serious: Yes (Hospitalization, Other)
  Sender: ASTELLAS
  Company Number: JP-ASTELLAS-2025-AER-039027

PATIENT
  Age: 81 Year
  Sex: Male

DRUGS (5)
  1. PADCEV [Suspect]
     Active Substance: ENFORTUMAB VEDOTIN-EJFV
     Indication: Transitional cell carcinoma
     Dosage: 2 DOSES AND 1 REST
     Route: 042
     Dates: start: 20250701, end: 20250708
  2. PADCEV [Suspect]
     Active Substance: ENFORTUMAB VEDOTIN-EJFV
     Dosage: 2 DOSES AND 1 REST
     Route: 042
     Dates: start: 20250912
  3. KEYTRUDA [Suspect]
     Active Substance: PEMBROLIZUMAB
     Indication: Transitional cell carcinoma
     Route: 042
     Dates: start: 20250701, end: 20250701
  4. PREDONINE [Concomitant]
     Active Substance: PREDNISOLONE
     Indication: Dermatitis exfoliative generalised
     Route: 065
     Dates: start: 20250715
  5. PREDONINE [Concomitant]
     Active Substance: PREDNISOLONE
     Indication: Immune-mediated enterocolitis

REACTIONS (2)
  - Dermatitis exfoliative generalised [Recovered/Resolved]
  - Immune-mediated enterocolitis [Recovered/Resolved]

NARRATIVE: CASE EVENT DATE: 20250709
